FAERS Safety Report 17210777 (Version 6)
Quarter: 2021Q2

REPORT INFORMATION
  Report Type: Spontaneous
  Country: NL (occurrence: NL)
  Receive Date: 20191227
  Receipt Date: 20210428
  Transmission Date: 20210716
  Serious: Yes (Other)
  Sender: FDA-Public Use
  Company Number: NL-GALDERMA-NL19076310

PATIENT
  Sex: Female
  Weight: 63 kg

DRUGS (13)
  1. DUODOPA [Concomitant]
     Active Substance: CARBIDOPA\LEVODOPA
     Dosage: MD 12.1, CD 4.9, ED 2.5
     Route: 050
  2. LISINOPRIL/HYDROCHLOORTHIAZIDE [Concomitant]
     Active Substance: HYDROCHLOROTHIAZIDE\LISINOPRIL
     Indication: PRODUCT USED FOR UNKNOWN INDICATION
     Dosage: 20/12.5 MG
     Route: 065
  3. DUODOPA [Concomitant]
     Active Substance: CARBIDOPA\LEVODOPA
     Dosage: MD: 12.1, CD: 4.6, ED: 2.5
     Route: 050
  4. FUROSEMIDE. [Concomitant]
     Active Substance: FUROSEMIDE
     Indication: PRODUCT USED FOR UNKNOWN INDICATION
     Route: 065
     Dates: end: 201702
  5. NEDIOS [Concomitant]
     Indication: PRODUCT USED FOR UNKNOWN INDICATION
     Route: 065
  6. EXELON [Concomitant]
     Active Substance: RIVASTIGMINE TARTRATE
     Indication: PRODUCT USED FOR UNKNOWN INDICATION
     Route: 065
  7. DOXYCYCLINE. [Suspect]
     Active Substance: DOXYCYCLINE
     Indication: PRODUCT USED FOR UNKNOWN INDICATION
     Route: 065
     Dates: start: 20160427
  8. CLOZAPINE. [Concomitant]
     Active Substance: CLOZAPINE
     Indication: PRODUCT USED FOR UNKNOWN INDICATION
     Route: 065
  9. LEVODOPA/CARBIDOPA [Concomitant]
     Active Substance: CARBIDOPA\LEVODOPA
     Indication: PRODUCT USED FOR UNKNOWN INDICATION
     Dosage: 100/25 MG
     Route: 065
  10. DUODOPA [Concomitant]
     Active Substance: CARBIDOPA\LEVODOPA
     Indication: PARKINSON^S DISEASE
     Dosage: MD 12.1, CD 5.9, ED 2.5
     Route: 050
     Dates: start: 20160111
  11. DUODOPA [Concomitant]
     Active Substance: CARBIDOPA\LEVODOPA
     Dosage: MD 12.1, CD 2.5, ED 4.0
     Route: 050
  12. DUODOPA [Concomitant]
     Active Substance: CARBIDOPA\LEVODOPA
     Dosage: MD 12.1, CD 5.2, ED 2.5
     Route: 050
  13. LEVODOPA/CARBIDOPA [Concomitant]
     Active Substance: CARBIDOPA\LEVODOPA
     Dosage: 100/25 MG
     Route: 065

REACTIONS (53)
  - Dry mouth [Not Recovered/Not Resolved]
  - Stoma site hypersensitivity [Recovered/Resolved]
  - Hyperkinesia [Recovered/Resolved]
  - On and off phenomenon [Not Recovered/Not Resolved]
  - Drug level below therapeutic [Unknown]
  - Fear [Not Recovered/Not Resolved]
  - Stoma site pain [Recovered/Resolved]
  - Oral discomfort [Not Recovered/Not Resolved]
  - Hallucination, auditory [Not Recovered/Not Resolved]
  - Hallucination [Not Recovered/Not Resolved]
  - Obsessive-compulsive disorder [Not Recovered/Not Resolved]
  - Headache [Not Recovered/Not Resolved]
  - Pruritus [Not Recovered/Not Resolved]
  - Oral pain [Not Recovered/Not Resolved]
  - Therapeutic product effect incomplete [Recovered/Resolved]
  - Freezing phenomenon [Not Recovered/Not Resolved]
  - Infrequent bowel movements [Not Recovered/Not Resolved]
  - Nuchal rigidity [Not Recovered/Not Resolved]
  - Vomiting [Not Recovered/Not Resolved]
  - Appetite disorder [Not Recovered/Not Resolved]
  - Stoma site discharge [Recovered/Resolved]
  - Musculoskeletal stiffness [Not Recovered/Not Resolved]
  - Fatigue [Not Recovered/Not Resolved]
  - Stoma site discomfort [Recovered/Resolved]
  - Faeces hard [Not Recovered/Not Resolved]
  - Medical device site hyperaesthesia [Recovered/Resolved]
  - Malaise [Not Recovered/Not Resolved]
  - Chest pain [Not Recovered/Not Resolved]
  - Delusion [Recovered/Resolved]
  - Slow speech [Not Recovered/Not Resolved]
  - Nausea [Recovering/Resolving]
  - Bradykinesia [Not Recovered/Not Resolved]
  - Hallucination, visual [Not Recovered/Not Resolved]
  - Ear infection [Not Recovered/Not Resolved]
  - Disinhibition [Not Recovered/Not Resolved]
  - Stoma site erythema [Recovered/Resolved]
  - Hypoacusis [Not Recovered/Not Resolved]
  - Gait disturbance [Not Recovered/Not Resolved]
  - Neck pain [Not Recovered/Not Resolved]
  - Skin irritation [Not Recovered/Not Resolved]
  - Hallucination, tactile [Not Recovered/Not Resolved]
  - Stoma site extravasation [Not Recovered/Not Resolved]
  - Cognitive disorder [Not Recovered/Not Resolved]
  - Hypotension [Not Recovered/Not Resolved]
  - Grimacing [Not Recovered/Not Resolved]
  - Device breakage [Unknown]
  - Stoma site irritation [Recovered/Resolved]
  - Limb discomfort [Not Recovered/Not Resolved]
  - Dyskinesia [Not Recovered/Not Resolved]
  - Therapeutic product effect variable [Not Recovered/Not Resolved]
  - Influenza like illness [Not Recovered/Not Resolved]
  - Urinary incontinence [Unknown]
  - Unevaluable event [Recovered/Resolved]

NARRATIVE: CASE EVENT DATE: 201605
